FAERS Safety Report 11184450 (Version 1)
Quarter: 2015Q2

REPORT INFORMATION
  Report Type: Spontaneous
  Country: FR (occurrence: None)
  Receive Date: 20150610
  Receipt Date: 20150610
  Transmission Date: 20150821
  Serious: Yes (Hospitalization)
  Sender: FDA-Public Use
  Company Number: FK201502565

PATIENT
  Age: 34 Year
  Sex: Female

DRUGS (9)
  1. SUFENTANIL (SUFENTANIL) (UNKNOWN) (SUFENTANIL) [Suspect]
     Active Substance: SUFENTANIL
     Indication: ANALGESIC THERAPY
  2. KETOPROFEN (KETOPROFEN) [Suspect]
     Active Substance: KETOPROFEN
     Indication: ANALGESIC THERAPY
     Route: 008
  3. ROPIVACAINE (MANUFACTURER UNKNOWN) (ROPIVACAINE) (ROPIVACAINE) [Suspect]
     Active Substance: ROPIVACAINE
     Indication: ANALGESIC THERAPY
     Route: 008
  4. NEFOPAM (NEFOPAM) (NEFOPAM) [Suspect]
     Active Substance: NEFOPAM
     Indication: ANALGESIC THERAPY
     Route: 008
  5. LIDOCAINE (LIDOCAINE) [Suspect]
     Active Substance: LIDOCAINE
     Indication: ANALGESIC THERAPY
     Route: 008
  6. PARACETAMOL (MANUFACTURER UNKNOWN)(PARACETAMOL) (PARACETAMOL) [Suspect]
     Active Substance: ACETAMINOPHEN
     Indication: ANALGESIC THERAPY
     Route: 048
  7. MORPHINE (MORPHINE) (MORPHINE) [Suspect]
     Active Substance: MORPHINE
     Indication: ANALGESIC THERAPY
     Route: 008
  8. ADRENALINE (EPINEPHRINE) [Suspect]
     Active Substance: EPINEPHRINE
     Indication: ANALGESIC THERAPY
     Route: 008
  9. ENOXAPARIN (ENOXAPARIN) [Concomitant]
     Active Substance: ENOXAPARIN

REACTIONS (6)
  - Caesarean section [None]
  - Gait disturbance [None]
  - Spinal epidural haemorrhage [None]
  - Paraesthesia [None]
  - Sensorimotor disorder [None]
  - Anaesthetic complication [None]
